FAERS Safety Report 7948836-4 (Version None)
Quarter: 2011Q4

REPORT INFORMATION
  Report Type: 
  Country: None (occurrence: None)
  Receive Date: 20111130
  Receipt Date: 20111116
  Transmission Date: 20120403
  Serious: Yes (Other)
  Sender: FDA-Public Use
  Company Number: PHFR2011GB006651

PATIENT
  Sex: Female

DRUGS (1)
  1. LETROZOLE [Suspect]
     Dosage: UNK
     Dates: start: 20100401

REACTIONS (4)
  - MYELOMALACIA [None]
  - PARAESTHESIA [None]
  - SPONDYLITIC MYELOPATHY [None]
  - ARTHRALGIA [None]
